FAERS Safety Report 4719830-1 (Version None)
Quarter: 2005Q3

REPORT INFORMATION
  Report Type: 
  Country: None (occurrence: None)
  Receive Date: 20050721
  Receipt Date: 20041129
  Transmission Date: 20060218
  Serious: No
  Sender: FDA-Public Use
  Company Number: US-GLAXOSMITHKLINE-A0535387A

PATIENT
  Age: 76 Year
  Sex: Male

DRUGS (5)
  1. AVANDIA [Suspect]
     Dosage: 12MG PER DAY
     Route: 048
  2. TRENTAL [Concomitant]
  3. ZOCOR [Concomitant]
  4. LISINOPRIL [Concomitant]
  5. ASPIRIN [Concomitant]

REACTIONS (1)
  - OVERDOSE [None]
